FAERS Safety Report 9302553 (Version 2)
Quarter: 2013Q2

REPORT INFORMATION
  Report Type: Report from Study
  Country: US (occurrence: None)
  Receive Date: 20130516
  Receipt Date: 20130617
  Transmission Date: 20140414
  Serious: Yes (Hospitalization, Other)
  Sender: FDA-Public Use
  Company Number: ACO_35993_2013

PATIENT
  Sex: Male

DRUGS (3)
  1. AMPYRA [Suspect]
     Indication: MULTIPLE SCLEROSIS
     Route: 048
     Dates: start: 20100525, end: 20130405
  2. ATIVAN (LORAZEPAM) [Concomitant]
  3. HALDOL (HALOPERIDOL) [Concomitant]

REACTIONS (2)
  - Convulsion [None]
  - Sepsis [None]
